FAERS Safety Report 16189673 (Version 2)
Quarter: 2019Q2

REPORT INFORMATION
  Report Type: Report from Study
  Country: MX (occurrence: MX)
  Receive Date: 20190412
  Receipt Date: 20190415
  Transmission Date: 20190711
  Serious: Yes (Death, Hospitalization, Other)
  Sender: FDA-Public Use
  Company Number: PHHY2019MX084582

PATIENT
  Age: 65 Year
  Sex: Female
  Weight: 57 kg

DRUGS (3)
  1. AROMASIN [Concomitant]
     Active Substance: EXEMESTANE
     Indication: HORMONE LEVEL ABNORMAL
     Dosage: 1 DF, Q24H
     Route: 048
     Dates: start: 20190208, end: 20190304
  2. AFINITOR [Suspect]
     Active Substance: EVEROLIMUS
     Indication: METASTASES TO LIVER
     Dosage: 10 MG, QD
     Route: 048
     Dates: start: 201902
  3. AFINITOR [Suspect]
     Active Substance: EVEROLIMUS
     Indication: METASTASES TO BONE

REACTIONS (6)
  - Hepatic pain [Unknown]
  - Liver injury [Unknown]
  - General physical condition abnormal [Unknown]
  - Product use in unapproved indication [Unknown]
  - Coma hepatic [Fatal]
  - Feeling abnormal [Unknown]

NARRATIVE: CASE EVENT DATE: 20190303
